FAERS Safety Report 4641309-6 (Version None)
Quarter: 2005Q2

REPORT INFORMATION
  Report Type: 
  Country: None (occurrence: None)
  Receive Date: 20050419
  Receipt Date: 20050406
  Transmission Date: 20051028
  Serious: Yes (Other)
  Sender: FDA-Public Use
  Company Number: 2005-BP-05694NB

PATIENT
  Age: 63 Year
  Sex: Male

DRUGS (2)
  1. SPIRIVA [Suspect]
     Indication: BRONCHITIS CHRONIC
     Dosage: 3 ANZ (18 MCG)
     Route: 048
  2. UNIPHYL [Concomitant]

REACTIONS (1)
  - CARDIAC FAILURE CONGESTIVE [None]
